FAERS Safety Report 26090112 (Version 1)
Quarter: 2025Q4

REPORT INFORMATION
  Report Type: Spontaneous
  Country: CN (occurrence: CN)
  Receive Date: 20251126
  Receipt Date: 20251126
  Transmission Date: 20260118
  Serious: Yes (Hospitalization)
  Sender: HISUN PHARMACEUTICALS USA INC
  Company Number: CN-Hisun Pharmaceuticals USA Inc.-000876

PATIENT
  Age: 68 Year
  Sex: Male

DRUGS (1)
  1. IRBESARTAN [Suspect]
     Active Substance: IRBESARTAN
     Indication: Bronchitis
     Dosage: 2 CAPSULES
     Route: 048
     Dates: start: 20250930, end: 20250930

REACTIONS (5)
  - Dizziness [Unknown]
  - Headache [Unknown]
  - Nausea [Unknown]
  - Product use in unapproved indication [Unknown]
  - Discomfort [Recovered/Resolved]

NARRATIVE: CASE EVENT DATE: 20250930
